FAERS Safety Report 18742305 (Version 3)
Quarter: 2021Q1

REPORT INFORMATION
  Report Type: Report from Study
  Country: US (occurrence: US)
  Receive Date: 20210114
  Receipt Date: 20210226
  Transmission Date: 20210419
  Serious: Yes (Other)
  Sender: FDA-Public Use
  Company Number: US-PFIZER INC-2021018433

PATIENT
  Age: 75 Year
  Sex: Female
  Weight: 55.8 kg

DRUGS (9)
  1. TREPROSTINIL SODIUM [Suspect]
     Active Substance: TREPROSTINIL SODIUM
     Indication: PULMONARY ARTERIAL HYPERTENSION
     Dosage: UNK
     Route: 055
     Dates: start: 20201224
  2. SILDENAFIL CITRATE. [Suspect]
     Active Substance: SILDENAFIL CITRATE
     Dosage: UNK
     Route: 065
     Dates: start: 20201224, end: 20201224
  3. ORENITRAM [Suspect]
     Active Substance: TREPROSTINIL
     Indication: PULMONARY ARTERIAL HYPERTENSION
     Dosage: 0.125 MG
     Route: 048
     Dates: start: 20200709
  4. ORENITRAM [Suspect]
     Active Substance: TREPROSTINIL
     Dosage: 0.875 MG EVERY 8 HOURS (Q8H)
     Route: 048
  5. AMBRISENTAN [Suspect]
     Active Substance: AMBRISENTAN
     Dosage: UNK
     Route: 065
  6. TREPROSTINIL SODIUM [Suspect]
     Active Substance: TREPROSTINIL SODIUM
     Dosage: 18 ? 54 MCG, (3?9 BREATHS) FOUR TIMES A DAY (QID)
     Route: 055
  7. ORENITRAM [Suspect]
     Active Substance: TREPROSTINIL
     Dosage: 0.25 MG
     Route: 048
  8. TREPROSTINIL DIETHANOLAMINE [Suspect]
     Active Substance: TREPROSTINIL
     Indication: PULMONARY ARTERIAL HYPERTENSION
     Dosage: UNK
     Route: 048
     Dates: start: 20200709
  9. TREPROSTINIL DIETHANOLAMINE [Suspect]
     Active Substance: TREPROSTINIL
     Dosage: 0.875 MG, 3X/DAY (0.875 MG, Q8H
     Route: 048

REACTIONS (6)
  - Pain in jaw [Unknown]
  - Malaise [Unknown]
  - Monoparesis [Unknown]
  - Bone pain [Unknown]
  - Flushing [Unknown]
  - Neck pain [Unknown]

NARRATIVE: CASE EVENT DATE: 2020
